FAERS Safety Report 7900054-1 (Version None)
Quarter: 2011Q4

REPORT INFORMATION
  Report Type: 
  Country: None (occurrence: None)
  Receive Date: 20111108
  Receipt Date: 20111027
  Transmission Date: 20120403
  Serious: Yes (Hospitalization)
  Sender: FDA-Public Use
  Company Number: FR-BIOGENIDEC-2011BI041074

PATIENT
  Age: 50 Year
  Sex: Male

DRUGS (4)
  1. MIDODRINE HYDROCHLORIDE [Concomitant]
     Indication: HYPOTENSION
     Dates: start: 20060701
  2. OXYBUTININ [Concomitant]
     Indication: HYPERTONIC BLADDER
  3. TYSABRI [Suspect]
     Indication: MULTIPLE SCLEROSIS
     Route: 042
     Dates: start: 20080129
  4. HYDROXYZINE [Concomitant]
     Indication: ANXIOLYTIC THERAPY

REACTIONS (2)
  - MALAISE [None]
  - LOSS OF CONSCIOUSNESS [None]
